FAERS Safety Report 6957653-3 (Version None)
Quarter: 2010Q3

REPORT INFORMATION
  Report Type: 
  Country: None (occurrence: None)
  Receive Date: 20100831
  Receipt Date: 20100823
  Transmission Date: 20110219
  Serious: Yes (Other)
  Sender: FDA-Public Use
  Company Number: US-ASTRAZENECA-2006UW07981

PATIENT
  Age: 52 Year
  Sex: Female
  Weight: 113.4 kg

DRUGS (39)
  1. SEROQUEL [Suspect]
     Indication: INSOMNIA
     Route: 048
     Dates: start: 20001201, end: 20060531
  2. SEROQUEL [Suspect]
     Indication: DEPRESSION
     Route: 048
     Dates: start: 20001201, end: 20060531
  3. SEROQUEL [Suspect]
     Dosage: 50MG-200MG
     Route: 048
     Dates: start: 20010222
  4. SEROQUEL [Suspect]
     Dosage: 50MG-200MG
     Route: 048
     Dates: start: 20010222
  5. SEROQUEL [Suspect]
     Route: 048
     Dates: start: 20001201, end: 20020701
  6. SEROQUEL [Suspect]
     Route: 048
     Dates: start: 20001201, end: 20020701
  7. SEROQUEL [Suspect]
     Route: 048
     Dates: start: 20010101, end: 20060401
  8. SEROQUEL [Suspect]
     Route: 048
     Dates: start: 20010101, end: 20060401
  9. SEROQUEL [Suspect]
     Route: 048
     Dates: start: 20010401, end: 20020701
  10. SEROQUEL [Suspect]
     Route: 048
     Dates: start: 20010401, end: 20020701
  11. CELEXA [Concomitant]
     Dosage: 20 TO 40 MG
     Dates: start: 20010201
  12. CELEXA [Concomitant]
     Dosage: STRENGTH- 20MG, 40MG  DOSE- 40MG DAILY
     Route: 048
  13. CELEXA [Concomitant]
     Dosage: 20 TO 40 MG
     Dates: start: 20000101
  14. ATENOLOL [Concomitant]
  15. LEVOXYL [Concomitant]
     Dosage: STRENGTH 175MCG  DOSE 175MCG DAILY
  16. AMITRIPTYLINE HCL [Concomitant]
  17. ROXICET [Concomitant]
  18. ADVAIR DISKUS 100/50 [Concomitant]
  19. COMBIVENT [Concomitant]
  20. CITALOPRAM [Concomitant]
  21. METFORMIN HCL [Concomitant]
  22. BUTALBITAL [Concomitant]
  23. ZOCOR [Concomitant]
     Route: 048
  24. GLIPIZIDE [Concomitant]
  25. ANDEHIST [Concomitant]
  26. PROPOXYPHENE NAPSYLATE AND ACETAMINOPHEN [Concomitant]
  27. PROMETHAZINE [Concomitant]
  28. DICYCLOMINE [Concomitant]
  29. SULFAMETHOXAZOLE AND TRIMETHOPRIM [Concomitant]
  30. OXYCODONE HCL AND ACETAMINOPHEN [Concomitant]
  31. SIMVASTATIN [Concomitant]
  32. AMBIEN [Concomitant]
  33. TRIAMCINOLONE [Concomitant]
  34. KETOROLAC [Concomitant]
  35. LEVAQUIN [Concomitant]
  36. SYNTHROID [Concomitant]
     Dosage: STRENGTH-  0.175MG, 0.2MG  DOSE- 0.175MG-0.2MG DAILY
  37. ELAVIL [Concomitant]
     Dosage: STRENGTH- 100MG, 200MG, 250MG  DOSE- 100MG-250MG DAILY
     Route: 048
  38. LIPITOR [Concomitant]
  39. FIORINAL [Concomitant]
     Indication: MIGRAINE

REACTIONS (10)
  - ASTHMA [None]
  - BLOOD CHOLESTEROL INCREASED [None]
  - BRONCHITIS [None]
  - DIABETES MELLITUS [None]
  - HYPERLIPIDAEMIA [None]
  - LIMB INJURY [None]
  - NASOPHARYNGITIS [None]
  - NEUROPATHY PERIPHERAL [None]
  - TARDIVE DYSKINESIA [None]
  - TYPE 2 DIABETES MELLITUS [None]
